FAERS Safety Report 7656844-6 (Version None)
Quarter: 2011Q3

REPORT INFORMATION
  Report Type: 
  Country: None (occurrence: None)
  Receive Date: 20110802
  Receipt Date: 20110719
  Transmission Date: 20111222
  Serious: Yes (Hospitalization, Other)
  Sender: FDA-Public Use
  Company Number: 1000021030

PATIENT
  Age: 59 Year
  Sex: Male
  Weight: 80 kg

DRUGS (3)
  1. TEGRETOL [Suspect]
     Indication: HYPOMANIA
     Dosage: 400 MG (200 MG, 2 IN 1 D), ORAL
     Route: 048
     Dates: start: 20110301, end: 20110405
  2. ESCITALOPRAM OXALATE [Suspect]
     Indication: DEPRESSION
     Dosage: 20 MG (20 MG, 1 IN 1 D), ORAL
     Route: 048
     Dates: start: 20100208, end: 20110414
  3. THERALENE (ALIMEMAZINE TARTRATE) (ALIMEMAZINE TARTRATE) [Concomitant]

REACTIONS (3)
  - HYPONATRAEMIA [None]
  - ANGIOEDEMA [None]
  - TOXIC SKIN ERUPTION [None]
